FAERS Safety Report 5700020-0 (Version None)
Quarter: 2008Q2

REPORT INFORMATION
  Report Type: 
  Country: None (occurrence: None)
  Receive Date: 20080410
  Receipt Date: 20080403
  Transmission Date: 20081010
  Serious: Yes (Death, Other)
  Sender: FDA-Public Use
  Company Number: BR-ASTRAZENECA-2008UW04991

PATIENT
  Age: 11 Year
  Sex: Male

DRUGS (4)
  1. SEROQUEL [Suspect]
     Indication: BIPOLAR DISORDER
     Route: 048
     Dates: start: 20070501
  2. TEGRETOL [Concomitant]
     Indication: BIPOLAR DISORDER
     Route: 048
     Dates: start: 20070501
  3. LEUCOGEN [Concomitant]
     Indication: IMMUNE ENHANCEMENT THERAPY
     Route: 048
  4. TOPAMAX [Concomitant]
     Indication: BIPOLAR DISORDER
     Route: 048
     Dates: start: 20080201

REACTIONS (7)
  - ABDOMINAL DISTENSION [None]
  - ASPIRATION BRONCHIAL [None]
  - DYSPNOEA [None]
  - PNEUMONITIS CHEMICAL [None]
  - RESPIRATORY FAILURE [None]
  - SEPSIS [None]
  - VOMITING [None]
